FAERS Safety Report 15940418 (Version 2)
Quarter: 2019Q3

REPORT INFORMATION
  Report Type: Spontaneous
  Country: US (occurrence: US)
  Receive Date: 20190208
  Receipt Date: 20190731
  Transmission Date: 20191004
  Serious: Yes (Other)
  Sender: FDA-Public Use
  Company Number: US-ASTRAZENECA-2019SE11425

PATIENT
  Age: 41 Year
  Sex: Male
  Weight: 136.1 kg

DRUGS (28)
  1. ATORVASTATIN [Concomitant]
     Active Substance: ATORVASTATIN
  2. NEXIUM [Suspect]
     Active Substance: ESOMEPRAZOLE MAGNESIUM
     Route: 048
     Dates: start: 2010
  3. PRILOSEC [Suspect]
     Active Substance: OMEPRAZOLE MAGNESIUM
     Indication: GASTROOESOPHAGEAL REFLUX DISEASE
     Route: 048
     Dates: start: 2010
  4. PRILOSEC OTC [Suspect]
     Active Substance: OMEPRAZOLE MAGNESIUM
     Indication: GASTROOESOPHAGEAL REFLUX DISEASE
     Dosage: TWO TIMES A DAY
     Route: 048
     Dates: start: 2010, end: 2014
  5. HYDRALAZINE [Concomitant]
     Active Substance: HYDRALAZINE HYDROCHLORIDE
  6. PREDNISONE. [Concomitant]
     Active Substance: PREDNISONE
  7. METHYLPRED [Concomitant]
     Active Substance: METHYLPREDNISOLONE
  8. IBUPROFEN. [Concomitant]
     Active Substance: IBUPROFEN
  9. AZITHROMYCIN ANHYDROUS. [Concomitant]
     Active Substance: AZITHROMYCIN ANHYDROUS
  10. CARVEDILOL. [Concomitant]
     Active Substance: CARVEDILOL
  11. INDOMETHACIN. [Concomitant]
     Active Substance: INDOMETHACIN
  12. PRILOSEC [Suspect]
     Active Substance: OMEPRAZOLE MAGNESIUM
     Indication: GASTROOESOPHAGEAL REFLUX DISEASE
     Dosage: GENERIC DAILY
     Route: 065
     Dates: start: 2014, end: 2019
  13. ALLOPURINOL. [Concomitant]
     Active Substance: ALLOPURINOL
  14. GABAPENTIN. [Concomitant]
     Active Substance: GABAPENTIN
  15. FLUTICASONE. [Concomitant]
     Active Substance: FLUTICASONE
  16. ALBUTEROL. [Concomitant]
     Active Substance: ALBUTEROL
  17. PENICILLIN NOS [Concomitant]
     Active Substance: PENICILLIN
  18. AMLODIPINE [Concomitant]
     Active Substance: AMLODIPINE BESYLATE
  19. FUROSEMIDE. [Concomitant]
     Active Substance: FUROSEMIDE
  20. PREVACID 24 HR [Suspect]
     Active Substance: LANSOPRAZOLE
     Indication: GASTROOESOPHAGEAL REFLUX DISEASE
     Route: 065
  21. CLONIDINE. [Concomitant]
     Active Substance: CLONIDINE
  22. CYCLOBENZAPRINE. [Concomitant]
     Active Substance: CYCLOBENZAPRINE
  23. MONTELUKAST [Concomitant]
     Active Substance: MONTELUKAST SODIUM
  24. LOSARTAN. [Concomitant]
     Active Substance: LOSARTAN
  25. PROVENTIL [Concomitant]
     Active Substance: ALBUTEROL
  26. NEXIUM 24HR [Suspect]
     Active Substance: ESOMEPRAZOLE MAGNESIUM
     Indication: GASTROOESOPHAGEAL REFLUX DISEASE
     Dosage: TWO TIMES A DAY
     Route: 048
     Dates: start: 2010, end: 2014
  27. SPIRONOLACTONE. [Concomitant]
     Active Substance: SPIRONOLACTONE
  28. TUMS [Concomitant]
     Active Substance: CALCIUM CARBONATE

REACTIONS (4)
  - Renal failure [Unknown]
  - Renal injury [Not Recovered/Not Resolved]
  - Chronic kidney disease [Unknown]
  - Rebound acid hypersecretion [Unknown]

NARRATIVE: CASE EVENT DATE: 2015
